FAERS Safety Report 15113774 (Version 1)
Quarter: 2018Q3

REPORT INFORMATION
  Report Type: Spontaneous
  Country: US (occurrence: US)
  Receive Date: 20180706
  Receipt Date: 20180706
  Transmission Date: 20181010
  Serious: No
  Sender: FDA-Public Use
  Company Number: US-PFIZER INC-2018271097

PATIENT
  Age: 46 Year
  Sex: Female

DRUGS (1)
  1. GENOTROPIN [Suspect]
     Active Substance: SOMATROPIN
     Dosage: 0.4 MG, UNK

REACTIONS (7)
  - Weight fluctuation [Unknown]
  - Headache [Unknown]
  - Asthenia [Unknown]
  - Pain in extremity [Unknown]
  - Aspartate aminotransferase decreased [Unknown]
  - Sleep disorder [Unknown]
  - Fatigue [Unknown]
